FAERS Safety Report 19079241 (Version 3)
Quarter: 2021Q2

REPORT INFORMATION
  Report Type: Spontaneous
  Country: US (occurrence: US)
  Receive Date: 20210331
  Receipt Date: 20210519
  Transmission Date: 20210717
  Serious: Yes (Other)
  Sender: FDA-Public Use
  Company Number: US-IPSEN BIOPHARMACEUTICALS, INC.-2021-07933

PATIENT
  Sex: Female

DRUGS (4)
  1. SOMATULINE DEPOT [Suspect]
     Active Substance: LANREOTIDE ACETATE
     Indication: NEUROENDOCRINE TUMOUR OF THE LUNG
     Dosage: 120 MG (STRENGTH: 120 MG/0.5 ML)
     Route: 065
     Dates: start: 2009
  2. SOMATULINE DEPOT [Suspect]
     Active Substance: LANREOTIDE ACETATE
     Indication: OFF LABEL USE
  3. IVERMECTINE [Concomitant]
     Active Substance: IVERMECTIN
  4. BUDESONIDE. [Concomitant]
     Active Substance: BUDESONIDE

REACTIONS (4)
  - Diabetes mellitus [Unknown]
  - Viral titre increased [Unknown]
  - Cough [Unknown]
  - Off label use [Unknown]

NARRATIVE: CASE EVENT DATE: 2009
